FAERS Safety Report 8378661-4 (Version None)
Quarter: 2012Q2

REPORT INFORMATION
  Report Type: 
  Country: None (occurrence: None)
  Receive Date: 20120522
  Receipt Date: 20120516
  Transmission Date: 20120825
  Serious: Yes (Hospitalization, Other)
  Sender: FDA-Public Use
  Company Number: ES-BAYER-2012-047100

PATIENT
  Age: 33 Year
  Sex: Female
  Weight: 48 kg

DRUGS (11)
  1. NEXAVAR [Suspect]
     Dosage: UNK
  2. NEXAVAR [Suspect]
     Indication: METASTASES TO LIVER
     Dosage: DAILY DOSE 600 MG
     Route: 048
     Dates: start: 20120201, end: 20120101
  3. DROSPIRENONE AND ETHINYL ESTRADIOL [Concomitant]
     Indication: METRORRHAGIA
     Dosage: UNK
     Route: 048
  4. LOPERAMIDE [Concomitant]
     Indication: DIARRHOEA
  5. LOPERAMIDE [Concomitant]
     Indication: GASTRIC DISORDER
     Dosage: UNK
     Route: 048
     Dates: start: 20120101
  6. RANITIDINE HCL [Concomitant]
     Indication: HYPERCHLORHYDRIA
     Dosage: DAILY DOSE 150 MG
     Dates: start: 20120101
  7. NEXAVAR [Suspect]
     Indication: THYROID CANCER
     Dosage: DAILY DOSE 600 MG
     Route: 048
     Dates: start: 20110801, end: 20120125
  8. NEXAVAR [Suspect]
     Dosage: DAILY DOSE 600 MG
     Dates: start: 20120404
  9. NEXAVAR [Suspect]
     Dosage: UNK
  10. LEVOTHYROXINE SODIUM [Concomitant]
     Indication: THYROID DISORDER
     Dosage: UNK
     Route: 048
     Dates: start: 19980101
  11. NEXAVAR [Suspect]
     Dosage: DAILY DOSE 600 MG
     Dates: end: 20120429

REACTIONS (8)
  - LARGE INTESTINAL ULCER HAEMORRHAGE [None]
  - ASTHENIA [None]
  - WEIGHT DECREASED [None]
  - RECTAL HAEMORRHAGE [None]
  - DIARRHOEA [None]
  - ABDOMINAL PAIN [None]
  - ANAEMIA [None]
  - MALAISE [None]
